FAERS Safety Report 13822732 (Version 1)
Quarter: 2017Q3

REPORT INFORMATION
  Report Type: Spontaneous
  Country: US (occurrence: US)
  Receive Date: 20170801
  Receipt Date: 20170801
  Transmission Date: 20171127
  Serious: Yes (Other)
  Sender: FDA-Public Use
  Company Number: PHHY2017US112248

PATIENT
  Age: 51 Year
  Sex: Male

DRUGS (4)
  1. MYCOPHENOLATE MOFETIL. [Suspect]
     Active Substance: MYCOPHENOLATE MOFETIL
     Indication: PACHYMENINGITIS
     Dosage: 0.1 MG, BID
     Route: 065
  2. MYCOPHENOLATE MOFETIL. [Suspect]
     Active Substance: MYCOPHENOLATE MOFETIL
     Indication: DISEASE PROGRESSION
  3. PREDNISONE. [Concomitant]
     Active Substance: PREDNISONE
     Indication: PACHYMENINGITIS
     Dosage: 40 MG, QD
     Route: 065
  4. PREDNISONE. [Concomitant]
     Active Substance: PREDNISONE
     Dosage: TAPERED
     Route: 065

REACTIONS (4)
  - Headache [Unknown]
  - Exophthalmos [Unknown]
  - Disease progression [Unknown]
  - Dyschromatopsia [Unknown]
